FAERS Safety Report 8283513-4 (Version None)
Quarter: 2012Q2

REPORT INFORMATION
  Report Type: 
  Country: None (occurrence: None)
  Receive Date: 20120413
  Receipt Date: 20120412
  Transmission Date: 20120825
  Serious: Yes (Death, Other)
  Sender: FDA-Public Use
  Company Number: PHHY2012US031103

PATIENT
  Age: 45 Year
  Sex: Female

DRUGS (1)
  1. DEXAMETHASONE [Suspect]
     Indication: THYROID CANCER
     Dosage: 8 MG, UNK

REACTIONS (7)
  - ENCEPHALITIS HERPES [None]
  - APHASIA [None]
  - VIRAL VASCULITIS [None]
  - SKIN LESION [None]
  - ABSCESS NECK [None]
  - MENTAL STATUS CHANGES [None]
  - CEREBRAL INFARCTION [None]
